FAERS Safety Report 4368493-6 (Version None)
Quarter: 2004Q2

REPORT INFORMATION
  Report Type: 
  Country: None (occurrence: None)
  Receive Date: 20040602
  Receipt Date: 20031118
  Transmission Date: 20050107
  Serious: Yes (Hospitalization, Other)
  Sender: FDA-Public Use
  Company Number: US-GLAXOSMITHKLINE-A0440218A

PATIENT
  Age: 2 Year
  Sex: Male
  Weight: 14.5 kg

DRUGS (1)
  1. AMOXICILLIN AND CLAVULANATE POTASSIUM [Suspect]
     Indication: ILL-DEFINED DISORDER
     Dosage: 600MG TWICE PER DAY
     Route: 048
     Dates: start: 20031028, end: 20031102

REACTIONS (1)
  - DIARRHOEA [None]
